FAERS Safety Report 10462435 (Version 1)
Quarter: 2014Q3

REPORT INFORMATION
  Report Type: Spontaneous
  Country: US (occurrence: US)
  Receive Date: 20140918
  Receipt Date: 20140918
  Transmission Date: 20150326
  Serious: No
  Sender: FDA-Public Use
  Company Number: US-ELI_LILLY_AND_COMPANY-US201408010071

PATIENT
  Age: 63 Year
  Sex: Male
  Weight: 86.17 kg

DRUGS (3)
  1. ASPIRIN. [Concomitant]
     Active Substance: ASPIRIN
  2. CIALIS [Suspect]
     Active Substance: TADALAFIL
     Dosage: 2.5 MG, UNK
  3. CIALIS [Suspect]
     Active Substance: TADALAFIL
     Dosage: 5 MG, UNK

REACTIONS (2)
  - Medication error [Unknown]
  - Drug ineffective [Unknown]
